FAERS Safety Report 7925263 (Version 2)
Quarter: 2013Q3

REPORT INFORMATION
  Report Type: Spontaneous
  Country: US (occurrence: US)
  Receive Date: 20110502
  Receipt Date: 20130705
  Transmission Date: 20140515
  Serious: No
  Sender: FDA-Public Use
  Company Number: US-ASTRAZENECA-2010SE20395

PATIENT
  Age: 58 Year
  Sex: Male
  Weight: 140.6 kg

DRUGS (12)
  1. NEXIUM [Suspect]
     Indication: GASTROOESOPHAGEAL REFLUX DISEASE
     Route: 048
     Dates: start: 201002
  2. LISINOPRIL [Suspect]
     Indication: BLOOD PRESSURE
     Route: 048
     Dates: start: 2010
  3. ALLOPURINOL [Concomitant]
     Indication: GOUT
     Route: 048
     Dates: start: 2012
  4. LEVOTHYROXINE [Concomitant]
     Indication: THYROID DISORDER
     Route: 048
     Dates: start: 2003
  5. ENDOTHACIN [Concomitant]
     Indication: ARTHRITIS
     Route: 048
     Dates: start: 2012
  6. MONTELUKAST [Concomitant]
     Indication: SEASONAL ALLERGY
     Route: 048
     Dates: start: 2011
  7. SPIRONOLACTONE [Concomitant]
     Indication: CARDIAC DISORDER
     Route: 048
     Dates: start: 2010
  8. FUROSEMIDE [Concomitant]
     Indication: WEIGHT ABNORMAL
     Route: 048
     Dates: start: 2008
  9. POTASSIUM CL [Concomitant]
     Indication: CARDIAC DISORDER
     Route: 048
     Dates: start: 2010
  10. POTASSIUM CL [Concomitant]
     Indication: BLOOD POTASSIUM ABNORMAL
     Route: 048
     Dates: start: 2010
  11. VITAMIN C [Concomitant]
     Indication: VITAMIN SUPPLEMENTATION
     Route: 048
     Dates: start: 2012
  12. VITAMIN D3 [Concomitant]
     Indication: VITAMIN D DECREASED
     Route: 048
     Dates: start: 2012

REACTIONS (2)
  - Hepatic enzyme increased [Not Recovered/Not Resolved]
  - Nausea [Unknown]
